FAERS Safety Report 8319371-9 (Version None)
Quarter: 2012Q2

REPORT INFORMATION
  Report Type: 
  Country: None (occurrence: None)
  Receive Date: 20120427
  Receipt Date: 20120418
  Transmission Date: 20120825
  Serious: Yes (Other)
  Sender: FDA-Public Use
  Company Number: US-ASTRAZENECA-2011SE54529

PATIENT
  Age: 81 Year
  Sex: Female

DRUGS (1)
  1. CRESTOR [Suspect]
     Route: 048
     Dates: start: 20040101

REACTIONS (4)
  - HEAD INJURY [None]
  - CAROTID ARTERY STENOSIS [None]
  - CONCUSSION [None]
  - LOWER LIMB FRACTURE [None]
